FAERS Safety Report 11885068 (Version 1)
Quarter: 2016Q1

REPORT INFORMATION
  Report Type: Spontaneous
  Country: US (occurrence: US)
  Receive Date: 20160104
  Receipt Date: 20160104
  Transmission Date: 20160526
  Serious: No
  Sender: FDA-Public Use
  Company Number: US-BAYER-2016-000460

PATIENT
  Age: 60 Year
  Sex: Male
  Weight: 84.81 kg

DRUGS (6)
  1. INDERAL-LA [Concomitant]
  2. PAXIL [Concomitant]
     Active Substance: PAROXETINE HYDROCHLORIDE
  3. SEROQUEL [Concomitant]
     Active Substance: QUETIAPINE FUMARATE
  4. LORAZEPAM. [Concomitant]
     Active Substance: LORAZEPAM
  5. CANDESARTAN [Concomitant]
     Active Substance: CANDESARTAN
  6. MIRALAX [Suspect]
     Active Substance: POLYETHYLENE GLYCOL 3350
     Indication: CONSTIPATION
     Dosage: 1 DF, QD
     Route: 048
     Dates: start: 201506

REACTIONS (3)
  - Product use issue [None]
  - Abdominal distension [Not Recovered/Not Resolved]
  - Hypertension [Not Recovered/Not Resolved]

NARRATIVE: CASE EVENT DATE: 201506
